FAERS Safety Report 5310477-5 (Version None)
Quarter: 2007Q2

REPORT INFORMATION
  Report Type: 
  Country: None (occurrence: None)
  Receive Date: 20070427
  Receipt Date: 20070418
  Transmission Date: 20071010
  Serious: Yes (Other)
  Sender: FDA-Public Use
  Company Number: CA-JNJFOC-20070404074

PATIENT
  Sex: Female
  Weight: 108 kg

DRUGS (2)
  1. REMICADE [Suspect]
     Dosage: INFUSION #11
     Route: 042
  2. REMICADE [Suspect]
     Indication: COLITIS ULCERATIVE
     Route: 042

REACTIONS (6)
  - INFUSION RELATED REACTION [None]
  - PRURITUS [None]
  - RASH ERYTHEMATOUS [None]
  - SENSORY DISTURBANCE [None]
  - THROAT IRRITATION [None]
  - URTICARIA [None]
